FAERS Safety Report 7369461-2 (Version None)
Quarter: 2011Q1

REPORT INFORMATION
  Report Type: 
  Country: None (occurrence: None)
  Receive Date: 20110323
  Receipt Date: 20110308
  Transmission Date: 20110831
  Serious: Yes (Hospitalization, Other)
  Sender: FDA-Public Use
  Company Number: PHHY2011US10949

PATIENT
  Sex: Male
  Weight: 71.202 kg

DRUGS (20)
  1. VITAMIN D [Concomitant]
  2. ASPIRIN [Concomitant]
     Dosage: 81 MG, DAILY
  3. VITAMIN B-12 [Concomitant]
     Dosage: 1000 UG, DAILY
  4. FOLIC ACID [Concomitant]
     Dosage: 1 MG, DAILY
     Route: 048
  5. GLIMEPIRIDE [Concomitant]
     Dosage: 4 MG, QD
     Route: 048
  6. LASIX [Concomitant]
     Dosage: 40 MG, DAILY
  7. EXJADE [Suspect]
     Indication: HAEMOLYTIC ANAEMIA
     Dosage: 500 MG, TID
     Route: 048
  8. ANDROGEL [Concomitant]
  9. METOPROLOL SUCCINATE [Concomitant]
     Dosage: 50 MG, QD
     Route: 048
  10. OMEPRAZOLE [Concomitant]
     Dosage: 40 MG, DAILY
  11. DIGOXIN [Concomitant]
     Dosage: 0.125 MG, DAILY
  12. KEFLEX [Concomitant]
     Dosage: 500 MG, TID
  13. TOPROL-XL [Concomitant]
     Dosage: 50 MG, DAILY
  14. ASPIRIN [Concomitant]
     Dosage: 325 MG, QD
  15. AMBIEN [Concomitant]
     Dosage: 5 MG, PRN
     Route: 048
  16. CARDIZEM CD [Concomitant]
     Dosage: 180 MG, DAILY
  17. EXJADE [Suspect]
     Indication: HAEMOCHROMATOSIS
  18. JANUVIA [Concomitant]
     Dosage: 100 MG, QD
  19. RIFAXIMIN [Concomitant]
     Dosage: 550 MG, BID
  20. NADOLOL [Concomitant]
     Dosage: 40 MG, DAILY

REACTIONS (34)
  - BACTERIAL SEPSIS [None]
  - PLATELET COUNT INCREASED [None]
  - HAEMOGLOBIN DECREASED [None]
  - HAEMATOCRIT DECREASED [None]
  - BLOOD LACTATE DEHYDROGENASE INCREASED [None]
  - ALANINE AMINOTRANSFERASE INCREASED [None]
  - CEREBRAL HAEMORRHAGE [None]
  - ATELECTASIS [None]
  - MALAISE [None]
  - CONTUSION [None]
  - HEPATOMEGALY [None]
  - BLOOD BILIRUBIN INCREASED [None]
  - MENTAL STATUS CHANGES [None]
  - VARICES OESOPHAGEAL [None]
  - DISORIENTATION [None]
  - ATRIAL FLUTTER [None]
  - OEDEMA PERIPHERAL [None]
  - BLOOD ALKALINE PHOSPHATASE INCREASED [None]
  - ARTHRALGIA [None]
  - DYSPNOEA [None]
  - HEPATIC ENCEPHALOPATHY [None]
  - AMMONIA INCREASED [None]
  - ASPARTATE AMINOTRANSFERASE INCREASED [None]
  - YELLOW SKIN [None]
  - FATIGUE [None]
  - ABDOMINAL PAIN [None]
  - CONFUSIONAL STATE [None]
  - FALL [None]
  - ATRIAL FIBRILLATION [None]
  - HYPOTENSION [None]
  - RETICULOCYTE COUNT INCREASED [None]
  - ANAEMIA [None]
  - SERUM FERRITIN INCREASED [None]
  - RENAL IMPAIRMENT [None]
